FAERS Safety Report 6385317-6 (Version None)
Quarter: 2009Q4

REPORT INFORMATION
  Report Type: 
  Country: None (occurrence: None)
  Receive Date: 20091002
  Receipt Date: 20080806
  Transmission Date: 20100525
  Serious: No
  Sender: FDA-Public Use
  Company Number: US-ASTRAZENECA-2008UW15744

PATIENT
  Age: 72 Year
  Sex: Female
  Weight: 72.1 kg

DRUGS (8)
  1. ARIMIDEX [Suspect]
     Indication: BREAST CANCER
     Route: 048
     Dates: start: 20041201
  2. LIPITOR [Concomitant]
  3. ACTONEL [Concomitant]
  4. TENEROMIN [Concomitant]
  5. DIAZEPAM [Concomitant]
  6. HTZ [Concomitant]
  7. ZYRTEC [Concomitant]
  8. XANAX [Concomitant]

REACTIONS (4)
  - ARTHRALGIA [None]
  - DIZZINESS [None]
  - SINUS DISORDER [None]
  - VERTIGO [None]
